FAERS Safety Report 22518319 (Version 3)
Quarter: 2023Q4

REPORT INFORMATION
  Report Type: Spontaneous
  Country: US (occurrence: US)
  Receive Date: 20230605
  Receipt Date: 20231010
  Transmission Date: 20240110
  Serious: Yes (Other)
  Sender: FDA-Public Use
  Company Number: US-BRISTOL-MYERS SQUIBB COMPANY-2023-078060

PATIENT
  Age: 69 Year
  Sex: Female

DRUGS (1)
  1. REVLIMID [Suspect]
     Active Substance: LENALIDOMIDE
     Indication: Plasma cell myeloma
     Dosage: TAKE 1 CAPSULE BY EVERY DAY MOUTH DAILY FOR 21 DAYS ON, 7 DAYS OFF AND REPEAT FOR 28 DAYS
     Route: 048
     Dates: start: 20230120

REACTIONS (3)
  - Gastroenteritis viral [Recovering/Resolving]
  - Haematological malignancy [Not Recovered/Not Resolved]
  - Brain fog [Not Recovered/Not Resolved]
